FAERS Safety Report 21895931 (Version 1)
Quarter: 2023Q1

REPORT INFORMATION
  Report Type: Spontaneous
  Country: US (occurrence: US)
  Receive Date: 20230123
  Receipt Date: 20230123
  Transmission Date: 20230418
  Serious: No
  Sender: FDA-Public Use
  Company Number: US-LUPIN PHARMACEUTICALS INC.-2023-00336

PATIENT

DRUGS (1)
  1. QUINAPRIL [Suspect]
     Active Substance: QUINAPRIL
     Indication: Blood cholesterol abnormal
     Dosage: 1 DOSAGE FORM, QD (ONE TABLET A DAY)
     Route: 048

REACTIONS (2)
  - Product use in unapproved indication [Unknown]
  - Recalled product administered [Unknown]
